FAERS Safety Report 14102065 (Version 1)
Quarter: 2017Q4

REPORT INFORMATION
  Report Type: Spontaneous
  Country: DE (occurrence: DE)
  Receive Date: 20171018
  Receipt Date: 20171018
  Transmission Date: 20180321
  Serious: No
  Sender: FDA-Public Use
  Company Number: DE-SUN PHARMACEUTICAL INDUSTRIES LTD-2017RR-152481

PATIENT
  Sex: Female

DRUGS (1)
  1. ISOTRETINOIN. [Suspect]
     Active Substance: ISOTRETINOIN
     Indication: ACNE
     Dosage: 20 MG, DAILY
     Route: 065
     Dates: start: 201511, end: 201603

REACTIONS (3)
  - Neurodermatitis [Not Recovered/Not Resolved]
  - Maternal exposure before pregnancy [Unknown]
  - Adverse reaction [Not Recovered/Not Resolved]
